FAERS Safety Report 8142201-5 (Version None)
Quarter: 2012Q1

REPORT INFORMATION
  Report Type: 
  Country: None (occurrence: None)
  Receive Date: 20120216
  Receipt Date: 20120202
  Transmission Date: 20120608
  Serious: Yes (Hospitalization, Other)
  Sender: FDA-Public Use
  Company Number: CA-ROCHE-664981

PATIENT
  Sex: Male
  Weight: 90 kg

DRUGS (5)
  1. RITUXIMAB [Suspect]
  2. RITUXIMAB [Suspect]
     Indication: FOCAL SEGMENTAL GLOMERULOSCLEROSIS
  3. PREDNISONE [Concomitant]
     Route: 048
     Dates: start: 20070828, end: 20071008
  4. RITUXIMAB [Suspect]
  5. PREDNISONE [Concomitant]
     Indication: NEPHROTIC SYNDROME
     Route: 048
     Dates: start: 20070627, end: 20070827

REACTIONS (11)
  - GINGIVAL HYPERPLASIA [None]
  - PYREXIA [None]
  - FATIGUE [None]
  - HYPERTENSION [None]
  - TRAUMATIC LUNG INJURY [None]
  - NEPHROTIC SYNDROME [None]
  - ACNE [None]
  - HIRSUTISM [None]
  - ADRENAL INSUFFICIENCY [None]
  - CUSHINGOID [None]
  - TACHYCARDIA [None]
